FAERS Safety Report 8074623-5 (Version None)
Quarter: 2012Q1

REPORT INFORMATION
  Report Type: 
  Country: None (occurrence: None)
  Receive Date: 20120120
  Receipt Date: 20120103
  Transmission Date: 20120608
  Serious: Yes (Death)
  Sender: FDA-Public Use
  Company Number: B0773475A

PATIENT
  Age: 50 Year
  Sex: Male

DRUGS (3)
  1. OXCARBAZEPINE [Suspect]
     Indication: PRODUCT USED FOR UNKNOWN INDICATION
     Dosage: 3.6 GRAM(S) / SINGLE DOSE / ORAL
     Route: 048
  2. BUPROPION HYDROCHLORIDE [Suspect]
     Indication: PRODUCT USED FOR UNKNOWN INDICATION
     Dosage: 4.5 GRAM(S) / SINGLE DOSE / ORAL
     Route: 048
  3. DILTIAZEM HYDROCHLORIDE [Suspect]
     Indication: PRODUCT USED FOR UNKNOWN INDICATION
     Dosage: 8 GRAM(S) / SINGLE DOSE / ORAL
     Route: 048

REACTIONS (28)
  - ASPIRATION [None]
  - THERAPEUTIC RESPONSE DECREASED [None]
  - RHONCHI [None]
  - HYPERHIDROSIS [None]
  - PO2 INCREASED [None]
  - ALANINE AMINOTRANSFERASE INCREASED [None]
  - CARDIAC DISORDER [None]
  - ACIDOSIS [None]
  - HAEMODIALYSIS [None]
  - PULMONARY OEDEMA [None]
  - ELECTROENCEPHALOGRAM ABNORMAL [None]
  - NECROSIS [None]
  - BRADYCARDIA [None]
  - HYPERGLYCAEMIA [None]
  - BLOOD POTASSIUM DECREASED [None]
  - ATRIOVENTRICULAR BLOCK FIRST DEGREE [None]
  - DIZZINESS [None]
  - HYPERKALAEMIA [None]
  - NODAL RHYTHM [None]
  - ABDOMINAL PAIN UPPER [None]
  - SCROTAL DISORDER [None]
  - TACHYPNOEA [None]
  - HYPOTENSION [None]
  - COMPLETED SUICIDE [None]
  - PCO2 INCREASED [None]
  - PLEURAL EFFUSION [None]
  - COMPARTMENT SYNDROME [None]
  - ASPARTATE AMINOTRANSFERASE INCREASED [None]
